FAERS Safety Report 11159814 (Version 1)
Quarter: 2015Q2

REPORT INFORMATION
  Report Type: Spontaneous
  Country: US (occurrence: US)
  Receive Date: 20150603
  Receipt Date: 20150603
  Transmission Date: 20150821
  Serious: Yes (Hospitalization, Other)
  Sender: FDA-Public Use
  Company Number: US-ABBVIE-13P-163-1141084-00

PATIENT
  Age: 12 Year
  Sex: Male
  Weight: 69.92 kg

DRUGS (13)
  1. DESYREL [Suspect]
     Active Substance: TRAZODONE HYDROCHLORIDE
     Indication: AFFECTIVE DISORDER
     Dosage: NIGHTLY
     Route: 048
     Dates: start: 20130108, end: 20130617
  2. THORAZINE [Suspect]
     Active Substance: CHLORPROMAZINE
     Indication: AFFECTIVE DISORDER
     Route: 048
     Dates: start: 20130326
  3. VYVANSE [Suspect]
     Active Substance: LISDEXAMFETAMINE DIMESYLATE
     Indication: AFFECTIVE DISORDER
     Dosage: EVERY MORNING
     Route: 048
     Dates: start: 20130331
  4. DEPAKOTE [Suspect]
     Active Substance: DIVALPROEX SODIUM
     Route: 048
     Dates: start: 20130617
  5. DESYREL [Suspect]
     Active Substance: TRAZODONE HYDROCHLORIDE
     Dosage: NIGHTLY
     Route: 048
     Dates: start: 20130617
  6. DEPAKOTE [Suspect]
     Active Substance: DIVALPROEX SODIUM
     Indication: AFFECTIVE DISORDER
     Route: 048
     Dates: start: 20120301
  7. VYVANSE [Suspect]
     Active Substance: LISDEXAMFETAMINE DIMESYLATE
     Dosage: AT NOON
     Route: 048
     Dates: start: 20130402
  8. DEPAKOTE [Suspect]
     Active Substance: DIVALPROEX SODIUM
     Route: 048
     Dates: start: 20130621
  9. MENINGOCOCCAL GROUP B PLACEBO [Suspect]
     Active Substance: MENINGOCOCCAL GROUP B VACCINE
     Indication: PROPHYLAXIS
     Route: 030
     Dates: start: 20130409, end: 20130409
  10. CATAPRES [Suspect]
     Active Substance: CLONIDINE HYDROCHLORIDE
     Indication: AFFECTIVE DISORDER
     Dosage: NIGHTLY
     Route: 048
     Dates: start: 20120301
  11. THORAZINE [Suspect]
     Active Substance: CHLORPROMAZINE
     Indication: AGGRESSION
     Route: 048
     Dates: start: 20130617
  12. MENINGOCOCCAL GROUP B PLACEBO [Suspect]
     Active Substance: MENINGOCOCCAL GROUP B VACCINE
     Route: 030
     Dates: start: 20121009, end: 20121009
  13. PROZAC [Suspect]
     Active Substance: FLUOXETINE HYDROCHLORIDE
     Indication: AFFECTIVE DISORDER
     Route: 048
     Dates: start: 20121108

REACTIONS (3)
  - Aggression [Recovered/Resolved]
  - Affective disorder [Unknown]
  - Treatment noncompliance [Unknown]

NARRATIVE: CASE EVENT DATE: 20130617
